FAERS Safety Report 8488748-3 (Version None)
Quarter: 2012Q3

REPORT INFORMATION
  Report Type: 
  Country: None (occurrence: None)
  Receive Date: 20120705
  Receipt Date: 20120628
  Transmission Date: 20120928
  Serious: Yes (Other)
  Sender: FDA-Public Use
  Company Number: US-TEVA-345974USA

PATIENT
  Sex: Female

DRUGS (1)
  1. CLARAVIS [Suspect]
     Dosage: 60 MILLIGRAM; 20MG AND 40MG
     Dates: start: 20120427, end: 20120628

REACTIONS (1)
  - UNINTENDED PREGNANCY [None]
